FAERS Safety Report 5206659-3 (Version None)
Quarter: 2006Q4

REPORT INFORMATION
  Report Type: 
  Country: None (occurrence: None)
  Receive Date: 20061026
  Receipt Date: 20060714
  Transmission Date: 20070319
  Serious: No
  Sender: FDA-Public Use
  Company Number: 2006088113

PATIENT

DRUGS (2)
  1. LYRICA [Suspect]
     Indication: DRUG USE FOR UNKNOWN INDICATION
  2. VYTORIN [Concomitant]

REACTIONS (1)
  - BLOOD CREATINE PHOSPHOKINASE INCREASED [None]
